FAERS Safety Report 20903994 (Version 1)
Quarter: 2022Q2

REPORT INFORMATION
  Report Type: Spontaneous
  Country: CH (occurrence: CH)
  Receive Date: 20220602
  Receipt Date: 20220602
  Transmission Date: 20220721
  Serious: No
  Sender: FDA-Public Use
  Company Number: CH-ALKEM LABORATORIES LIMITED-CH-ALKEM-2022-01118

PATIENT
  Age: 36 Year
  Sex: Female

DRUGS (4)
  1. NIMODIPINE [Suspect]
     Active Substance: NIMODIPINE
     Indication: Vasospasm
     Dosage: UNK
     Route: 042
  2. FLUDROCORTISONE [Suspect]
     Active Substance: FLUDROCORTISONE
     Indication: Product used for unknown indication
     Dosage: UNK
     Route: 065
  3. METHYLPREDNISOLONE [Suspect]
     Active Substance: METHYLPREDNISOLONE
  4. PREDNISONE [Suspect]
     Active Substance: PREDNISONE

REACTIONS (2)
  - Condition aggravated [Unknown]
  - Drug ineffective [Unknown]
